FAERS Safety Report 5250307-3 (Version None)
Quarter: 2007Q1

REPORT INFORMATION
  Report Type: 
  Country: None (occurrence: None)
  Receive Date: 20070228
  Receipt Date: 20060322
  Transmission Date: 20070707
  Serious: No
  Sender: FDA-Public Use
  Company Number: US-GLAXOSMITHKLINE-A0598623A

PATIENT
  Sex: Female

DRUGS (2)
  1. LAMICTAL [Suspect]
     Indication: FIBROMYALGIA
     Dosage: 50MG UNKNOWN
     Route: 048
  2. CLONAZEPAM [Concomitant]

REACTIONS (3)
  - FATIGUE [None]
  - HEADACHE [None]
  - PRURITUS [None]
